FAERS Safety Report 6314156-7 (Version None)
Quarter: 2009Q3

REPORT INFORMATION
  Report Type: 
  Country: None (occurrence: None)
  Receive Date: 20090817
  Receipt Date: 20090804
  Transmission Date: 20100115
  Serious: Yes (Hospitalization)
  Sender: FDA-Public Use
  Company Number: 238650K09USA

PATIENT
  Age: 35 Year
  Sex: Female

DRUGS (9)
  1. REBIF [Suspect]
     Indication: MULTIPLE SCLEROSIS
     Dosage: 22 MCG, 3 IN 1 WEEKS, SUBCUTANEOUS
     Route: 058
     Dates: start: 20090720
  2. VICODIN [Concomitant]
  3. ATIVAN [Concomitant]
  4. AMRIX [Concomitant]
  5. PREQUEST (ALL OTHER THERAPEUTIC PRODUCTS) [Concomitant]
  6. BACTRIM [Concomitant]
  7. CIPRO [Concomitant]
  8. RYTHMOL [Concomitant]
  9. ASPIRIN [Concomitant]

REACTIONS (5)
  - DYSURIA [None]
  - MULTIPLE SCLEROSIS [None]
  - POSTURAL ORTHOSTATIC TACHYCARDIA SYNDROME [None]
  - SUPRAVENTRICULAR TACHYCARDIA [None]
  - URINARY TRACT INFECTION [None]
